FAERS Safety Report 10817945 (Version 1)
Quarter: 2015Q1

REPORT INFORMATION
  Report Type: Spontaneous
  Country: US (occurrence: US)
  Receive Date: 20150218
  Receipt Date: 20150218
  Transmission Date: 20150721
  Serious: Yes (Hospitalization, Other)
  Sender: FDA-Public Use
  Company Number: US-JAZZ-2015-US-001357

PATIENT
  Age: 37 Year
  Sex: Male

DRUGS (7)
  1. FAZACLO [Suspect]
     Active Substance: CLOZAPINE
     Indication: SCHIZOPHRENIA, UNDIFFERENTIATED TYPE
     Dosage: 300-500 MG, QD (DOSE VARIANCE)
     Dates: start: 20070517, end: 20141203
  2. SIMVASTATIN. [Concomitant]
     Active Substance: SIMVASTATIN
  3. BENZATROPINE [Concomitant]
     Active Substance: BENZTROPINE
  4. METFORMIN HCL [Concomitant]
     Active Substance: METFORMIN HYDROCHLORIDE
  5. LISINOPRIL. [Concomitant]
     Active Substance: LISINOPRIL
  6. LIPICOR [Concomitant]
  7. KLONOPIN [Concomitant]
     Active Substance: CLONAZEPAM

REACTIONS (5)
  - Fall [Recovered/Resolved]
  - Disorientation [Recovered/Resolved]
  - Blood creatine phosphokinase increased [Recovered/Resolved]
  - Cardiomyopathy [Recovered/Resolved]
  - C-reactive protein increased [Recovered/Resolved]

NARRATIVE: CASE EVENT DATE: 2014
